FAERS Safety Report 20695338 (Version 1)
Quarter: 2022Q2

REPORT INFORMATION
  Report Type: Report from Study
  Country: IN (occurrence: IN)
  Receive Date: 20220411
  Receipt Date: 20220411
  Transmission Date: 20220721
  Serious: Yes (Hospitalization, Other)
  Sender: FDA-Public Use
  Company Number: IN-NOVARTISPH-PHHY2019IN118924

PATIENT
  Age: 35 Year
  Sex: Female

DRUGS (11)
  1. SIMULECT [Suspect]
     Active Substance: BASILIXIMAB
     Indication: Renal transplant
     Dosage: 20 MG, UNK
     Route: 042
     Dates: start: 20190416, end: 20190421
  2. SIMULECT [Suspect]
     Active Substance: BASILIXIMAB
     Dosage: UNK
     Route: 065
     Dates: start: 20190423
  3. SIMULECT [Suspect]
     Active Substance: BASILIXIMAB
     Dosage: 20 MG
     Route: 065
     Dates: start: 20190419
  4. THYMOGLOBULIN [Concomitant]
     Active Substance: LAPINE T-LYMPHOCYTE IMMUNE GLOBULIN
     Indication: Product used for unknown indication
     Dosage: 25 MG
     Route: 065
     Dates: start: 20190424
  5. AMTAS [Concomitant]
     Indication: Product used for unknown indication
     Dosage: 5 MG (1-0-1, 8AM-9PM)
     Route: 065
  6. PANTOCID DSR [Concomitant]
     Indication: Product used for unknown indication
     Dosage: 40 MG (1-0-0, EMPTY STOMACH)
     Route: 065
  7. IMUNOTAC [Concomitant]
     Indication: Product used for unknown indication
     Dosage: 1 MG (2-0-2, 10AM-10PM)
     Route: 065
  8. PREDNISOLONE [Concomitant]
     Active Substance: PREDNISOLONE
     Indication: Product used for unknown indication
     Dosage: 30 MG (1-0-0, 10AM)
     Route: 065
  9. MOFETYL [Concomitant]
     Indication: Product used for unknown indication
     Dosage: 500 MG (2-0-2, 8AM-9PM)
     Route: 065
  10. CANDID [Concomitant]
     Indication: Product used for unknown indication
     Dosage: UNK (1-0-1)
     Route: 065
  11. CREMAFFIN PLUS [Concomitant]
     Indication: Product used for unknown indication
     Dosage: UNK (3 TSP)
     Route: 065

REACTIONS (6)
  - Kidney transplant rejection [Recovered/Resolved]
  - Kidney fibrosis [Unknown]
  - Renal tubular atrophy [Unknown]
  - Inflammation [Unknown]
  - Capillaritis [Unknown]
  - Arteriosclerosis [Unknown]

NARRATIVE: CASE EVENT DATE: 20190423
